FAERS Safety Report 5633831-0 (Version None)
Quarter: 2008Q1

REPORT INFORMATION
  Report Type: 
  Country: None (occurrence: None)
  Receive Date: 20080131
  Receipt Date: 20071002
  Transmission Date: 20080703
  Serious: No
  Sender: FDA-Public Use
  Company Number: 163-21880-07100096

PATIENT
  Age: 52 Year
  Sex: Male

DRUGS (8)
  1. REVLIMID [Suspect]
     Indication: MULTIPLE MYELOMA
     Dosage: 25 MG, DAILY X 21 DAYS, ORAL
     Route: 048
     Dates: start: 20070818
  2. VELCADE [Suspect]
     Indication: DRUG USE FOR UNKNOWN INDICATION
     Dosage: 25 MG, DAILY X 21 DAYS
  3. DEXAMETHASONE TAB [Concomitant]
  4. CALCIUM (CALCIUM) [Concomitant]
  5. VITAMIN D [Concomitant]
  6. VITAMIN B6 [Concomitant]
  7. MAGNESIUM SUPPLEMENTS (MAGNESIUM) [Concomitant]
  8. BISPHOSPHONATE (BISPHOSPHONATES) (INJECTION FOR INFUSION) [Concomitant]

REACTIONS (4)
  - FATIGUE [None]
  - INSOMNIA [None]
  - MYALGIA [None]
  - SWELLING [None]
